FAERS Safety Report 7940584-X (Version None)
Quarter: 2011Q4

REPORT INFORMATION
  Report Type: 
  Country: None (occurrence: None)
  Receive Date: 20111128
  Receipt Date: 20111118
  Transmission Date: 20120403
  Serious: Yes (Hospitalization, Other)
  Sender: FDA-Public Use
  Company Number: US-ELI_LILLY_AND_COMPANY-US201004003431

PATIENT
  Sex: Female
  Weight: 130.16 kg

DRUGS (27)
  1. BYETTA [Suspect]
     Dosage: 10 UG, 2/D
     Route: 058
     Dates: start: 20100408
  2. CALCITRIOL [Concomitant]
     Dosage: 0.5 MG, UNKNOWN
  3. XANAX [Concomitant]
     Indication: PANIC ATTACK
     Dosage: UNK, AS NEEDED
     Route: 048
  4. PAXIL CR [Concomitant]
     Dosage: 75 MG, DAILY (1/D)
  5. BYSTOLIC [Concomitant]
     Dosage: 2.5 MG, QD
     Route: 048
  6. CALCIUM WITH VITAMIN D [Concomitant]
     Dosage: 1000 MG, BID
     Route: 048
  7. BYETTA [Suspect]
     Indication: TYPE 2 DIABETES MELLITUS
     Dosage: 5 UG, 2/D
     Route: 058
  8. XYZAL [Concomitant]
     Indication: SINUS DISORDER
     Dosage: 5 MG, DAILY (1/D)
  9. RANITIDINE [Concomitant]
     Indication: GASTROOESOPHAGEAL REFLUX DISEASE
     Dosage: UNK
  10. BYETTA [Suspect]
     Dosage: 5 UG, 2/D
     Route: 058
     Dates: start: 20100308, end: 20100408
  11. ALBUTEROL [Concomitant]
     Indication: DYSPNOEA
     Dosage: UNK, AS NEEDED
  12. PAXIL CR [Concomitant]
     Dosage: 37.5 MG, DAILY (1/D)
     Route: 048
  13. BYETTA [Suspect]
     Dosage: 10 UG, 2/D
     Route: 058
  14. LIPITOR [Concomitant]
     Dosage: 40 MG, QD
     Route: 048
     Dates: start: 20111110
  15. ABILIFY [Concomitant]
     Dosage: 5 MG, DAILY (1/D)
  16. BYSTOLIC [Concomitant]
     Dosage: 5 MG, DAILY (1/D)
  17. ACCUPRIL [Concomitant]
     Indication: HYPERTENSION
     Dosage: 10 MG, DAILY (1/D)
     Route: 048
  18. FLOVENT [Concomitant]
     Indication: DYSPNOEA
     Dosage: 1 D/F, AS NEEDED
  19. CALCIUM [Concomitant]
     Dosage: 1000 MG, 2/D
  20. MIRALAX [Concomitant]
  21. FISH OIL [Concomitant]
     Dosage: 1000 MG, BID
     Route: 048
  22. GLIPIZIDE [Concomitant]
     Indication: TYPE 2 DIABETES MELLITUS
     Dosage: 5 MG, 2/D
     Route: 048
  23. LIPITOR [Concomitant]
     Dosage: 20 MG, DAILY (1/D)
  24. ASCORBIC ACID [Concomitant]
     Dosage: 500 MG, BID
     Route: 048
  25. ASPIRIN [Concomitant]
     Indication: CARDIAC DISORDER
     Dosage: 81 MG, DAILY (1/D)
     Route: 048
  26. ABILIFY [Concomitant]
     Dosage: 5 MG, DAILY (1/D)
  27. PREVACID [Concomitant]
     Indication: HELICOBACTER INFECTION
     Dosage: 30 MG, DAILY (1/D)

REACTIONS (13)
  - MENTAL DISORDER [None]
  - BLOOD THYROID STIMULATING HORMONE INCREASED [None]
  - THYROID FUNCTION TEST ABNORMAL [None]
  - AORTIC VALVE DISEASE [None]
  - CAROTID ARTERY DISEASE [None]
  - BLOOD THYROID STIMULATING HORMONE DECREASED [None]
  - THYROID DISORDER [None]
  - THYROID ADENOMA [None]
  - HYPOTHYROIDISM [None]
  - THYROID NEOPLASM [None]
  - THYROXINE FREE INCREASED [None]
  - THINKING ABNORMAL [None]
  - HYPERTHYROIDISM [None]
